FAERS Safety Report 7820581-5 (Version None)
Quarter: 2011Q4

REPORT INFORMATION
  Report Type: 
  Country: None (occurrence: None)
  Receive Date: 20111018
  Receipt Date: 20111005
  Transmission Date: 20120403
  Serious: Yes (Hospitalization, Other)
  Sender: FDA-Public Use
  Company Number: US-BAYER-2011-055332

PATIENT
  Sex: Female
  Weight: 108.84 kg

DRUGS (7)
  1. KAPIDEX [Concomitant]
     Dosage: 60 MG, QD
  2. MULTI-VITAMIN [Concomitant]
     Dosage: UNK UNK, QD
  3. VITAMIN B COMPLEX CAP [Concomitant]
     Dosage: UNK UNK, QD
  4. VITAMIN A AND D [Concomitant]
     Dosage: UNK UNK, QD
  5. CHROMIUM CHLORIDE [Concomitant]
     Dosage: 200 MCG/24HR, QD
  6. DROSPIRENONE AND ETHINYL ESTRADIOL [Suspect]
     Indication: PRODUCT USED FOR UNKNOWN INDICATION
     Dosage: UNK
     Dates: start: 20090101
  7. FLUOXETINE [Concomitant]
     Dosage: 40 MG, QD

REACTIONS (4)
  - INJURY [None]
  - GALLBLADDER DISORDER [None]
  - PAIN [None]
  - BILIARY DYSKINESIA [None]
